FAERS Safety Report 16610626 (Version 1)
Quarter: 2019Q3

REPORT INFORMATION
  Report Type: Spontaneous
  Country: US (occurrence: US)
  Receive Date: 20190607
  Receipt Date: 20190607
  Transmission Date: 20191004
  Serious: Yes (Other)
  Sender: FDA-Public Use
  Company Number: None

PATIENT
  Age: 41 Year
  Sex: Female
  Weight: 93.89 kg

DRUGS (1)
  1. LAMOTRIGINE. [Suspect]
     Active Substance: LAMOTRIGINE
     Indication: HEADACHE
     Dates: start: 20190208, end: 20190222

REACTIONS (10)
  - Rash generalised [None]
  - Burning sensation [None]
  - Skin exfoliation [None]
  - Lip swelling [None]
  - Swollen tongue [None]
  - Pruritus [None]
  - Drug interaction [None]
  - Angioedema [None]
  - Oral mucosal blistering [None]
  - Stevens-Johnson syndrome [None]

NARRATIVE: CASE EVENT DATE: 20190308
